FAERS Safety Report 20869416 (Version 1)
Quarter: 2022Q2

REPORT INFORMATION
  Report Type: Report from Study
  Country: KR (occurrence: KR)
  Receive Date: 20220524
  Receipt Date: 20220524
  Transmission Date: 20220721
  Serious: Yes (Hospitalization)
  Sender: FDA-Public Use
  Company Number: KR-CELLTRION INC.-2022KR005233

PATIENT

DRUGS (15)
  1. INVESTIGATIONAL BIOSIMILARS [Suspect]
     Active Substance: INVESTIGATIONAL BIOSIMILARS
     Indication: Neoplasm malignant
     Dosage: INITIAL LOAD CAPACITY IS 8MG/KG, THE FREQUENCY OF IP ADMINISTRATION IS EVERY 3 WEEKS
     Route: 042
     Dates: start: 20220323, end: 20220421
  2. INVESTIGATIONAL BIOSIMILARS [Suspect]
     Active Substance: INVESTIGATIONAL BIOSIMILARS
     Indication: Neuroendocrine carcinoma
     Dosage: HOLDING CAPACITY IS 6MG/KG, THE FREQUENCY OF IP ADMINISTRATION IS EVERY 3 WEEKS
  3. NERATINIB MALEATE [Suspect]
     Active Substance: NERATINIB MALEATE
     Indication: Neoplasm malignant
     Dosage: 240 MG, EVERYDAY
     Route: 048
     Dates: start: 20220323, end: 20220420
  4. NERATINIB MALEATE [Suspect]
     Active Substance: NERATINIB MALEATE
     Indication: Neuroendocrine carcinoma
  5. TAMLOSTAR SR [Concomitant]
     Indication: Bladder dysfunction
     Dosage: 0.2 MG, QD
     Route: 048
     Dates: start: 20220110, end: 20220421
  6. SELEBETA SR [Concomitant]
     Indication: Bladder dysfunction
     Dosage: 50 MG, QD
     Route: 048
     Dates: start: 20220110, end: 20220421
  7. NORVASC [Concomitant]
     Active Substance: AMLODIPINE BESYLATE
     Indication: Hypertension
     Dosage: 5 MG, QD
     Route: 048
     Dates: start: 20211210, end: 20220421
  8. NALOXONE HYDROCHLORIDE\OXYCODONE HYDROCHLORIDE [Concomitant]
     Active Substance: NALOXONE HYDROCHLORIDE\OXYCODONE HYDROCHLORIDE
     Indication: Tumour pain
     Dosage: 80/40MG, BID
     Route: 048
     Dates: start: 20211210, end: 20220422
  9. D MAC [Concomitant]
     Indication: Prophylaxis
     Dosage: 1000 IU, QD
     Route: 048
     Dates: start: 20220411, end: 20220414
  10. D MAC [Concomitant]
     Indication: Vitamin D deficiency
  11. PANTOPRAZOLE SODIUM [Concomitant]
     Active Substance: PANTOPRAZOLE SODIUM
     Indication: Abdominal pain upper
     Dosage: 40 MG, QD
     Route: 048
     Dates: start: 20220413, end: 20220423
  12. URUSA [Concomitant]
     Active Substance: URSODIOL
     Indication: Aspartate aminotransferase increased
     Dosage: 100 MG, TID
     Route: 048
     Dates: start: 20220413
  13. DEXAMETHASONE [Concomitant]
     Active Substance: DEXAMETHASONE
     Indication: Nausea
     Dosage: 5 MG, QD
     Route: 042
     Dates: start: 20220413, end: 20220413
  14. MYTONIN [BETHANECHOL CHLORIDE] [Concomitant]
  15. MACPERAN [METOCLOPRAMIDE HYDROCHLORIDE] [Concomitant]

REACTIONS (3)
  - Disease progression [Not Recovered/Not Resolved]
  - Liver function test increased [Unknown]
  - Off label use [Unknown]

NARRATIVE: CASE EVENT DATE: 20220421
